FAERS Safety Report 8143043 (Version 21)
Quarter: 2014Q4

REPORT INFORMATION
  Report Type: Spontaneous
  Country: US (occurrence: US)
  Receive Date: 20110919
  Receipt Date: 20141006
  Transmission Date: 20150529
  Serious: Yes (Life-Threatening, Hospitalization, Other)
  Sender: FDA-Public Use
  Company Number: US-ASTRAZENECA-2011SE54480

PATIENT
  Age: 39 Year
  Sex: Female
  Weight: 63.5 kg

DRUGS (69)
  1. SEROQUEL XR [Suspect]
     Active Substance: QUETIAPINE FUMARATE
     Indication: SCHIZOPHRENIA
     Route: 048
  2. VALIUM [Suspect]
     Active Substance: DIAZEPAM
     Indication: ANXIETY
     Route: 048
  3. VALIUM [Suspect]
     Active Substance: DIAZEPAM
     Indication: ANXIETY
     Route: 048
  4. CHEMOTHERAPY [Suspect]
     Active Substance: UNSPECIFIED INGREDIENT
     Indication: NEOPLASM MALIGNANT
     Route: 065
     Dates: start: 2000, end: 2009
  5. RADIATION [Suspect]
     Active Substance: RADIATION THERAPY
     Indication: NEOPLASM MALIGNANT
     Route: 065
     Dates: start: 1987
  6. HYDROCODEINE [Suspect]
     Active Substance: DIHYDROCODEINE PHOSPHATE
     Indication: HEADACHE
     Route: 065
  7. CIPROFLOXACIN. [Concomitant]
     Active Substance: CIPROFLOXACIN
     Route: 042
  8. FLUTICASONE TROPIONATE [Concomitant]
     Indication: MULTIPLE ALLERGIES
     Route: 045
  9. ACYCLOVIR. [Concomitant]
     Active Substance: ACYCLOVIR
  10. GABAPENTIN. [Concomitant]
     Active Substance: GABAPENTIN
  11. SEROQUEL XR [Suspect]
     Active Substance: QUETIAPINE FUMARATE
     Indication: TRANSIENT ISCHAEMIC ATTACK
     Route: 048
     Dates: start: 1997, end: 201307
  12. SEROQUEL XR [Suspect]
     Active Substance: QUETIAPINE FUMARATE
     Indication: SCHIZOPHRENIA
     Route: 048
     Dates: start: 1998
  13. SEROQUEL XR [Suspect]
     Active Substance: QUETIAPINE FUMARATE
     Indication: TRANSIENT ISCHAEMIC ATTACK
     Route: 048
     Dates: start: 2009
  14. CHEMOTHERAPY [Suspect]
     Active Substance: UNSPECIFIED INGREDIENT
     Indication: NEOPLASM MALIGNANT
     Route: 065
     Dates: start: 1993
  15. CHEMOTHERAPY [Suspect]
     Active Substance: UNSPECIFIED INGREDIENT
     Indication: NEOPLASM MALIGNANT
     Route: 065
     Dates: start: 1999
  16. RADIATION [Suspect]
     Active Substance: RADIATION THERAPY
     Indication: NEOPLASM MALIGNANT
     Route: 065
     Dates: start: 1999
  17. LASIX [Suspect]
     Active Substance: FUROSEMIDE
     Indication: LOCAL SWELLING
     Route: 048
  18. VENTOLIN HFA [Concomitant]
     Active Substance: ALBUTEROL SULFATE
     Indication: ASTHMA
     Dosage: TID
     Route: 055
     Dates: start: 1993
  19. SEROQUEL XR [Suspect]
     Active Substance: QUETIAPINE FUMARATE
     Indication: DEPRESSION
     Route: 048
     Dates: start: 1997, end: 1997
  20. SEROQUEL XR [Suspect]
     Active Substance: QUETIAPINE FUMARATE
     Indication: ANXIETY
     Route: 048
  21. SEROQUEL XR [Suspect]
     Active Substance: QUETIAPINE FUMARATE
     Indication: SCHIZOPHRENIA
     Route: 048
  22. SEROQUEL XR [Suspect]
     Active Substance: QUETIAPINE FUMARATE
     Indication: ANXIETY
     Route: 048
  23. VALIUM [Suspect]
     Active Substance: DIAZEPAM
     Indication: DEPRESSION
     Route: 048
  24. CHEMOTHERAPY [Suspect]
     Active Substance: UNSPECIFIED INGREDIENT
     Indication: NEOPLASM MALIGNANT
     Route: 065
     Dates: start: 1987
  25. CHEMOTHERAPY [Suspect]
     Active Substance: UNSPECIFIED INGREDIENT
     Indication: NEOPLASM MALIGNANT
     Route: 065
     Dates: start: 1995
  26. POTASSIUM [Suspect]
     Active Substance: POTASSIUM
     Indication: BLOOD PRESSURE ABNORMAL
     Route: 048
  27. 18 DIFFERENT PILLS [Concomitant]
  28. HYDROCHLOROTHIAZIDE. [Concomitant]
     Active Substance: HYDROCHLOROTHIAZIDE
     Indication: BLOOD PRESSURE ABNORMAL
     Route: 048
     Dates: start: 1993
  29. METHOTREXATE [Concomitant]
     Active Substance: METHOTREXATE
  30. SEROQUEL XR [Suspect]
     Active Substance: QUETIAPINE FUMARATE
     Indication: ANXIETY
     Route: 048
     Dates: start: 1997, end: 1997
  31. SEROQUEL XR [Suspect]
     Active Substance: QUETIAPINE FUMARATE
     Indication: SCHIZOPHRENIA
     Route: 048
     Dates: start: 1997, end: 201307
  32. SEROQUEL XR [Suspect]
     Active Substance: QUETIAPINE FUMARATE
     Indication: DEPRESSION
     Route: 048
     Dates: start: 1997, end: 201307
  33. SEROQUEL XR [Suspect]
     Active Substance: QUETIAPINE FUMARATE
     Indication: DEPRESSION
     Route: 048
     Dates: start: 1998
  34. SEROQUEL XR [Suspect]
     Active Substance: QUETIAPINE FUMARATE
     Indication: DEPRESSION
     Route: 048
  35. SEROQUEL XR [Suspect]
     Active Substance: QUETIAPINE FUMARATE
     Indication: BIPOLAR DISORDER
     Route: 048
  36. SEROQUEL XR [Suspect]
     Active Substance: QUETIAPINE FUMARATE
     Indication: SCHIZOPHRENIA
     Route: 048
     Dates: start: 2009
  37. VALIUM [Suspect]
     Active Substance: DIAZEPAM
     Indication: DEPRESSION
     Route: 048
     Dates: end: 2006
  38. VALIUM [Suspect]
     Active Substance: DIAZEPAM
     Indication: DEPRESSION
     Route: 048
  39. ZERTAC OTC [Concomitant]
     Indication: MULTIPLE ALLERGIES
     Dosage: PRN
  40. SEROQUEL XR [Suspect]
     Active Substance: QUETIAPINE FUMARATE
     Indication: TRANSIENT ISCHAEMIC ATTACK
     Route: 048
     Dates: start: 1998
  41. SEROQUEL XR [Suspect]
     Active Substance: QUETIAPINE FUMARATE
     Indication: BIPOLAR DISORDER
     Route: 048
     Dates: start: 1998
  42. SEROQUEL XR [Suspect]
     Active Substance: QUETIAPINE FUMARATE
     Indication: BIPOLAR DISORDER
     Route: 048
  43. SEROQUEL XR [Suspect]
     Active Substance: QUETIAPINE FUMARATE
     Indication: ANXIETY
     Route: 048
     Dates: start: 2009
  44. RADIATION [Suspect]
     Active Substance: RADIATION THERAPY
     Indication: NEOPLASM MALIGNANT
     Route: 065
     Dates: start: 1993
  45. UNSPECIFIED HIGH BLOOD PRESSURE MEDICATION [Suspect]
     Active Substance: UNSPECIFIED INGREDIENT
     Indication: HYPERTENSION
     Route: 065
  46. UNSPECIFIED HIGH CHOLESTEROL MEDICATION [Suspect]
     Active Substance: UNSPECIFIED INGREDIENT
     Indication: BLOOD CHOLESTEROL INCREASED
     Route: 065
  47. FLUTCASOME [Concomitant]
     Indication: MULTIPLE ALLERGIES
     Route: 045
     Dates: start: 1993
  48. SEROQUEL XR [Suspect]
     Active Substance: QUETIAPINE FUMARATE
     Indication: SCHIZOPHRENIA
     Route: 048
     Dates: start: 1997, end: 1997
  49. SEROQUEL XR [Suspect]
     Active Substance: QUETIAPINE FUMARATE
     Indication: TRANSIENT ISCHAEMIC ATTACK
     Route: 048
     Dates: start: 1997, end: 1997
  50. SEROQUEL XR [Suspect]
     Active Substance: QUETIAPINE FUMARATE
     Indication: ANXIETY
     Route: 048
     Dates: start: 1997, end: 201307
  51. SEROQUEL XR [Suspect]
     Active Substance: QUETIAPINE FUMARATE
     Indication: BIPOLAR DISORDER
     Route: 048
     Dates: start: 1997, end: 201307
  52. SEROQUEL XR [Suspect]
     Active Substance: QUETIAPINE FUMARATE
     Indication: TRANSIENT ISCHAEMIC ATTACK
     Route: 048
  53. SEROQUEL XR [Suspect]
     Active Substance: QUETIAPINE FUMARATE
     Indication: DEPRESSION
     Route: 048
  54. SEROQUEL XR [Suspect]
     Active Substance: QUETIAPINE FUMARATE
     Indication: DEPRESSION
     Route: 048
     Dates: start: 2009
  55. SEROQUEL XR [Suspect]
     Active Substance: QUETIAPINE FUMARATE
     Indication: BIPOLAR DISORDER
     Route: 048
     Dates: start: 2009
  56. RADIATION [Suspect]
     Active Substance: RADIATION THERAPY
     Indication: NEOPLASM MALIGNANT
     Route: 065
     Dates: start: 1996
  57. RADIATION [Suspect]
     Active Substance: RADIATION THERAPY
     Indication: NEOPLASM MALIGNANT
     Route: 065
     Dates: start: 2000
  58. POTASSIUM [Suspect]
     Active Substance: POTASSIUM
     Indication: BLOOD PRESSURE ABNORMAL
     Dosage: TWO TIMES A DAY
     Route: 048
     Dates: start: 1993
  59. POTASSIUM [Suspect]
     Active Substance: POTASSIUM
     Indication: MINERAL SUPPLEMENTATION
     Dosage: TWO TIMES A DAY
     Route: 048
     Dates: start: 1993
  60. POTASSIUM [Suspect]
     Active Substance: POTASSIUM
     Indication: BLOOD PRESSURE ABNORMAL
     Dosage: 1020, TID
     Route: 048
  61. SEROQUEL XR [Suspect]
     Active Substance: QUETIAPINE FUMARATE
     Indication: BIPOLAR DISORDER
     Route: 048
     Dates: start: 1997, end: 1997
  62. CHEMOTHERAPY [Suspect]
     Active Substance: UNSPECIFIED INGREDIENT
     Indication: NEOPLASM MALIGNANT
     Route: 065
     Dates: start: 1996
  63. RADIATION [Suspect]
     Active Substance: RADIATION THERAPY
     Indication: NEOPLASM MALIGNANT
     Route: 065
     Dates: start: 1995
  64. VENTOLIN HFA [Concomitant]
     Active Substance: ALBUTEROL SULFATE
     Indication: CHRONIC OBSTRUCTIVE PULMONARY DISEASE
     Dosage: TID
     Route: 055
     Dates: start: 1993
  65. SEROQUEL XR [Suspect]
     Active Substance: QUETIAPINE FUMARATE
     Indication: ANXIETY
     Route: 048
     Dates: start: 1998
  66. SEROQUEL XR [Suspect]
     Active Substance: QUETIAPINE FUMARATE
     Indication: TRANSIENT ISCHAEMIC ATTACK
     Route: 048
  67. VALIUM [Suspect]
     Active Substance: DIAZEPAM
     Indication: ANXIETY
     Route: 048
     Dates: end: 2006
  68. POTASSIUM [Suspect]
     Active Substance: POTASSIUM
     Indication: MINERAL SUPPLEMENTATION
     Route: 048
  69. POTASSIUM [Suspect]
     Active Substance: POTASSIUM
     Indication: MINERAL SUPPLEMENTATION
     Dosage: 1020, TID
     Route: 048

REACTIONS (72)
  - Cervix carcinoma recurrent [Unknown]
  - Recurrent cancer [Unknown]
  - Ageusia [Unknown]
  - Liver tenderness [Unknown]
  - Hepatic failure [Not Recovered/Not Resolved]
  - Blindness [Not Recovered/Not Resolved]
  - Mental disorder [Recovered/Resolved]
  - Apparent death [Unknown]
  - Seizure [Not Recovered/Not Resolved]
  - Nausea [Unknown]
  - Anxiety [Unknown]
  - Eye disorder [Recovered/Resolved]
  - Fall [Recovered/Resolved]
  - Hepatic infection [Recovered/Resolved]
  - Bipolar disorder [Unknown]
  - Nasal discharge discolouration [Unknown]
  - Glaucoma [Not Recovered/Not Resolved]
  - Visual acuity reduced [Unknown]
  - Myocardial infarction [Unknown]
  - Visual impairment [Unknown]
  - Schizophrenia [Unknown]
  - Gastroenteritis viral [Unknown]
  - Adverse drug reaction [Unknown]
  - Dehydration [Recovered/Resolved]
  - Dysstasia [Not Recovered/Not Resolved]
  - Activities of daily living impaired [Unknown]
  - Weight increased [Unknown]
  - Intentional product misuse [Unknown]
  - Drug dispensing error [Unknown]
  - Generalised oedema [Unknown]
  - Abdominal pain upper [Recovered/Resolved]
  - Rash [Unknown]
  - Vomiting [Unknown]
  - Drug ineffective [Recovered/Resolved]
  - Cancer in remission [Recovering/Resolving]
  - Staphylococcal infection [Unknown]
  - Hallucination, visual [Unknown]
  - Hypoacusis [Unknown]
  - Diarrhoea [Unknown]
  - Abdominal discomfort [Unknown]
  - Headache [Unknown]
  - Gait disturbance [Unknown]
  - Weight decreased [Recovered/Resolved]
  - Pyrexia [Unknown]
  - Off label use [Not Recovered/Not Resolved]
  - Drug dose omission [Not Recovered/Not Resolved]
  - Mouth haemorrhage [Unknown]
  - Immunodeficiency [Unknown]
  - Anosmia [Unknown]
  - Varicella [Unknown]
  - Cardiac arrest [Recovered/Resolved]
  - Haematemesis [Recovered/Resolved]
  - Swelling face [Unknown]
  - Peripheral swelling [Unknown]
  - Adverse event [Unknown]
  - Eating disorder [Unknown]
  - Dizziness [Unknown]
  - Neoplasm malignant [Unknown]
  - Radiation injury [Unknown]
  - Amnesia [Unknown]
  - Malaise [Unknown]
  - Nasopharyngitis [Unknown]
  - Herpes zoster [Unknown]
  - Migraine [Not Recovered/Not Resolved]
  - Product use issue [Unknown]
  - Thrombosis [Unknown]
  - Peripheral swelling [Not Recovered/Not Resolved]
  - Infection [Recovered/Resolved]
  - Agitation [Unknown]
  - Insomnia [Not Recovered/Not Resolved]
  - Dysgeusia [Not Recovered/Not Resolved]
  - Dyspnoea [Unknown]

NARRATIVE: CASE EVENT DATE: 1997
